FAERS Safety Report 11092384 (Version 1)
Quarter: 2015Q2

REPORT INFORMATION
  Report Type: Spontaneous
  Country: US (occurrence: None)
  Receive Date: 20150505
  Receipt Date: 20150505
  Transmission Date: 20150821
  Serious: Yes (Death, Life-Threatening, Hospitalization, Disabling, Other)
  Sender: FDA-Public Use
  Company Number: None

PATIENT
  Age: 82 Year
  Sex: Female
  Weight: 69.85 kg

DRUGS (1)
  1. HALOPERIDOL. [Suspect]
     Active Substance: HALOPERIDOL
     Indication: SLEEP DISORDER
     Dosage: THE NURSE DID NOT KNOW?MANY PILLS?DOCTOR 4 HOUR^S PILLS, 30 TIMES FOR DAY^S OVER 30 TIME^S. AND SHE WAS IN (COMA)
     Dates: start: 20140505, end: 20140508

REACTIONS (5)
  - Cerebrovascular accident [None]
  - Cardiac failure [None]
  - Renal failure [None]
  - Coma [None]
  - Overdose [None]

NARRATIVE: CASE EVENT DATE: 20140505
